FAERS Safety Report 6659759-5 (Version None)
Quarter: 2010Q1

REPORT INFORMATION
  Report Type: 
  Country: None (occurrence: None)
  Receive Date: 20100330
  Receipt Date: 20100322
  Transmission Date: 20100710
  Serious: Yes (Other)
  Sender: FDA-Public Use
  Company Number: US-MERCK-0805USA00710

PATIENT
  Age: 45 Year
  Sex: Male
  Weight: 85 kg

DRUGS (10)
  1. FOSAMAX [Suspect]
     Indication: OSTEOPOROSIS
     Route: 048
     Dates: start: 19960801, end: 20000201
  2. FOSAMAX [Suspect]
     Route: 048
     Dates: start: 20000201, end: 20070601
  3. ZOLOFT [Concomitant]
     Route: 065
  4. FLEXERIL [Concomitant]
     Indication: MUSCLE RELAXANT THERAPY
     Route: 048
     Dates: start: 19960101
  5. CODEINE [Concomitant]
     Route: 065
  6. IBUPROFEN [Concomitant]
     Indication: BACK PAIN
     Route: 065
     Dates: start: 19960101
  7. ASPIRIN [Concomitant]
     Route: 065
  8. VITAMINS (UNSPECIFIED) [Concomitant]
     Route: 065
  9. HYDROCHLOROTHIAZIDE [Concomitant]
     Indication: POLYURIA
     Route: 065
     Dates: start: 19960101
  10. VICODIN [Concomitant]
     Indication: PAIN MANAGEMENT
     Route: 065
     Dates: start: 19960101

REACTIONS (38)
  - ABDOMINAL SYMPTOM [None]
  - ADVERSE DRUG REACTION [None]
  - ANDROGEN DEFICIENCY [None]
  - ANXIETY [None]
  - BLOOD GLUCOSE INCREASED [None]
  - BRONCHITIS [None]
  - CATARACT [None]
  - CELLULITIS [None]
  - CERUMEN IMPACTION [None]
  - CHEST PAIN [None]
  - CHRONIC OBSTRUCTIVE PULMONARY DISEASE [None]
  - DENTAL CARIES [None]
  - DEPRESSION [None]
  - DIARRHOEA [None]
  - DIZZINESS [None]
  - DRY SKIN [None]
  - DYSPEPSIA [None]
  - ECZEMA [None]
  - ERECTILE DYSFUNCTION [None]
  - EXOSTOSIS [None]
  - HORMONE LEVEL ABNORMAL [None]
  - HYPERCALCIURIA [None]
  - HYPERPARATHYROIDISM [None]
  - HYPERTHYROIDISM [None]
  - HYPOTHYROIDISM [None]
  - INSOMNIA [None]
  - ORAL DISORDER [None]
  - OSTEOARTHRITIS [None]
  - OSTEOMYELITIS [None]
  - OSTEONECROSIS [None]
  - PULPITIS DENTAL [None]
  - RENAL DISORDER [None]
  - RIB FRACTURE [None]
  - TOOTH ABSCESS [None]
  - URINARY RETENTION [None]
  - VERTIGO [None]
  - VISUAL ACUITY REDUCED [None]
  - WEIGHT INCREASED [None]
